FAERS Safety Report 19741211 (Version 1)
Quarter: 2021Q3

REPORT INFORMATION
  Report Type: Spontaneous
  Country: CN (occurrence: CN)
  Receive Date: 20210824
  Receipt Date: 20210824
  Transmission Date: 20211014
  Serious: Yes (Hospitalization, Other)
  Sender: FDA-Public Use
  Company Number: CN-GLAXOSMITHKLINE-CNCH2021APC057015

PATIENT
  Age: 63 Year
  Sex: Male
  Weight: 73 kg

DRUGS (10)
  1. CEFMETAZOLE [Suspect]
     Active Substance: CEFMETAZOLE
     Indication: PRURITUS
  2. FENBID (IBUPROFEN) [Suspect]
     Active Substance: IBUPROFEN
     Indication: PYREXIA
     Dosage: 1 DF, BID
     Route: 048
     Dates: start: 20210621, end: 20210623
  3. CEFMETAZOLE [Suspect]
     Active Substance: CEFMETAZOLE
     Indication: BLISTER
     Dosage: UNK
     Route: 042
  4. SOLU?MEDROL [Suspect]
     Active Substance: METHYLPREDNISOLONE SODIUM SUCCINATE
     Indication: BLISTER
     Dosage: 40 MG, QD
     Route: 042
  5. SOLU?MEDROL [Suspect]
     Active Substance: METHYLPREDNISOLONE SODIUM SUCCINATE
     Indication: PRURITUS
  6. SOLU?MEDROL [Suspect]
     Active Substance: METHYLPREDNISOLONE SODIUM SUCCINATE
     Indication: RASH
  7. CEFMETAZOLE [Suspect]
     Active Substance: CEFMETAZOLE
     Indication: RASH
  8. SULPERAZON [Suspect]
     Active Substance: CEFOPERAZONE SODIUM\SULBACTAM SODIUM
     Indication: BLISTER
     Dosage: UNK
     Route: 042
  9. SULPERAZON [Suspect]
     Active Substance: CEFOPERAZONE SODIUM\SULBACTAM SODIUM
     Indication: PRURITUS
  10. SULPERAZON [Suspect]
     Active Substance: CEFOPERAZONE SODIUM\SULBACTAM SODIUM
     Indication: RASH

REACTIONS (12)
  - Condition aggravated [Recovering/Resolving]
  - Urticaria [Recovering/Resolving]
  - Rash [Recovering/Resolving]
  - Oral mucosa erosion [Recovering/Resolving]
  - Mucosal erosion [Recovering/Resolving]
  - Blister [Recovering/Resolving]
  - Pain [Recovering/Resolving]
  - Myalgia [Recovering/Resolving]
  - Erythema multiforme [Recovering/Resolving]
  - Erythema [Recovering/Resolving]
  - Pruritus [Recovering/Resolving]
  - Conjunctival hyperaemia [Recovering/Resolving]

NARRATIVE: CASE EVENT DATE: 20210623
